FAERS Safety Report 12913830 (Version 1)
Quarter: 2016Q4

REPORT INFORMATION
  Report Type: Spontaneous
  Country: JP (occurrence: JP)
  Receive Date: 20161105
  Receipt Date: 20161105
  Transmission Date: 20170207
  Serious: Yes (Hospitalization)
  Sender: FDA-Public Use
  Company Number: JP-ACCORD-045414

PATIENT
  Age: 49 Year
  Sex: Male

DRUGS (2)
  1. IRINOTECAN [Suspect]
     Active Substance: IRINOTECAN
     Indication: SMALL CELL LUNG CANCER
  2. CISPLATIN. [Suspect]
     Active Substance: CISPLATIN
     Indication: SMALL CELL LUNG CANCER

REACTIONS (17)
  - Haemoglobin decreased [None]
  - Blood lactate dehydrogenase increased [None]
  - Blood chloride decreased [None]
  - Lymphangiosis carcinomatosa [None]
  - Inappropriate antidiuretic hormone secretion [Unknown]
  - Oxygen saturation decreased [None]
  - Blood pH decreased [None]
  - Blood lactic acid increased [None]
  - Blood potassium decreased [None]
  - Disseminated intravascular coagulation [Unknown]
  - PCO2 decreased [None]
  - PO2 decreased [None]
  - Red blood cell count decreased [None]
  - Pantoea agglomerans infection [Unknown]
  - Septic shock [Recovered/Resolved]
  - Diarrhoea [Unknown]
  - Blood bilirubin increased [None]
